FAERS Safety Report 10034112 (Version 1)
Quarter: 2014Q1

REPORT INFORMATION
  Report Type: Spontaneous
  Country: DE (occurrence: DE)
  Receive Date: 20140325
  Receipt Date: 20140325
  Transmission Date: 20141002
  Serious: Yes (Death)
  Sender: FDA-Public Use
  Company Number: DE-ROCHE-1368070

PATIENT
  Age: 64 Year
  Sex: Female

DRUGS (3)
  1. AVASTIN [Suspect]
     Indication: OVARIAN CANCER
     Route: 065
  2. TAXOL [Suspect]
     Indication: OVARIAN CANCER
     Route: 065
     Dates: start: 201307
  3. PARAPLATIN [Suspect]
     Indication: OVARIAN CANCER
     Route: 065
     Dates: start: 201307

REACTIONS (1)
  - Malignant neoplasm progression [Fatal]
